FAERS Safety Report 14132512 (Version 1)
Quarter: 2017Q4

REPORT INFORMATION
  Report Type: Spontaneous
  Country: HR (occurrence: HR)
  Receive Date: 20171026
  Receipt Date: 20171026
  Transmission Date: 20180321
  Serious: Yes (Other)
  Sender: FDA-Public Use
  Company Number: HR-TEVA-817547ROM

PATIENT
  Age: 14 Year
  Sex: Female

DRUGS (6)
  1. AKINETON [Suspect]
     Active Substance: BIPERIDEN HYDROCHLORIDE
     Dosage: 20 MILLIGRAM DAILY;
     Route: 048
     Dates: start: 20170827, end: 20170827
  2. HALDOL [Suspect]
     Active Substance: HALOPERIDOL
     Dosage: 20 MILLIGRAM DAILY;
     Route: 048
     Dates: start: 20170827, end: 20170827
  3. LOQUEN [Suspect]
     Active Substance: QUETIAPINE FUMARATE
     Dosage: 2 GRAM DAILY;
     Route: 048
     Dates: start: 20170827, end: 20170827
  4. RIVOTRIL [Suspect]
     Active Substance: CLONAZEPAM
     Dosage: 20 MILLIGRAM DAILY;
     Route: 048
     Dates: start: 20170827, end: 20170827
  5. DEPAKINE CHRONO 300 MG [Suspect]
     Active Substance: VALPROATE SODIUM
     Dosage: 3 GRAM DAILY;
     Route: 048
     Dates: start: 20170827, end: 20170827
  6. MIRZATEN Q TAB [Suspect]
     Active Substance: MIRTAZAPINE
     Dosage: 150 MILLIGRAM DAILY;
     Route: 048
     Dates: start: 20170827, end: 20170827

REACTIONS (6)
  - Intentional overdose [Unknown]
  - Suicide attempt [Unknown]
  - Loss of consciousness [Unknown]
  - Restlessness [Unknown]
  - Mydriasis [Unknown]
  - Respiratory failure [Unknown]

NARRATIVE: CASE EVENT DATE: 20170827
